FAERS Safety Report 18664975 (Version 1)
Quarter: 2020Q4

REPORT INFORMATION
  Report Type: Spontaneous
  Country: US (occurrence: US)
  Receive Date: 20201225
  Receipt Date: 20201225
  Transmission Date: 20210114
  Serious: No
  Sender: FDA-Public Use
  Company Number: US-ASTRAZENECA-2020SF62991

PATIENT
  Age: 61 Year
  Sex: Male
  Weight: 97.5 kg

DRUGS (2)
  1. METFORMIN [Concomitant]
     Active Substance: METFORMIN HYDROCHLORIDE
  2. BYDUREON BCISE [Suspect]
     Active Substance: EXENATIDE
     Indication: TYPE 2 DIABETES MELLITUS
     Route: 058
     Dates: start: 20200707

REACTIONS (8)
  - Wrong technique in device usage process [Unknown]
  - Weight decreased [Unknown]
  - Drug dose omission by device [Unknown]
  - Blood pressure decreased [Recovering/Resolving]
  - Blood glucose increased [Unknown]
  - Intentional device misuse [Unknown]
  - Device leakage [Unknown]
  - Weight increased [Unknown]

NARRATIVE: CASE EVENT DATE: 2020
